FAERS Safety Report 9191856 (Version 2)
Quarter: 2013Q4

REPORT INFORMATION
  Report Type: Spontaneous
  Country: JP (occurrence: JP)
  Receive Date: 20130327
  Receipt Date: 20131011
  Transmission Date: 20140711
  Serious: Yes (Hospitalization, Other)
  Sender: FDA-Public Use
  Company Number: JP-009507513-1303JPN011778

PATIENT
  Sex: 0

DRUGS (1)
  1. COSOPT OPHTHALMIC SOLUTION [Suspect]
     Dosage: DAILY DOSE UNKNOWN
     Route: 047
     Dates: start: 201212

REACTIONS (1)
  - Systemic lupus erythematosus [Unknown]
